FAERS Safety Report 7377738-X (Version None)
Quarter: 2011Q1

REPORT INFORMATION
  Report Type: 
  Country: None (occurrence: None)
  Receive Date: 20110328
  Receipt Date: 20110321
  Transmission Date: 20110831
  Serious: Yes (Other)
  Sender: FDA-Public Use
  Company Number: US-JNJFOC-20110204607

PATIENT
  Age: 14 Year
  Sex: Female

DRUGS (2)
  1. AMIKACIN [Concomitant]
     Indication: KLEBSIELLA INFECTION
     Route: 065
  2. DORIBAX [Suspect]
     Indication: KLEBSIELLA INFECTION
     Route: 041

REACTIONS (3)
  - ARTHRITIS INFECTIVE [None]
  - OFF LABEL USE [None]
  - BACTERAEMIA [None]
